FAERS Safety Report 6735515-4 (Version None)
Quarter: 2010Q2

REPORT INFORMATION
  Report Type: 
  Country: None (occurrence: None)
  Receive Date: 20100521
  Receipt Date: 20100511
  Transmission Date: 20101027
  Serious: Yes (Hospitalization)
  Sender: FDA-Public Use
  Company Number: DK-WYE-H14235310

PATIENT
  Age: 72 Year
  Sex: Male

DRUGS (13)
  1. CORDARONE [Suspect]
     Indication: VENTRICULAR TACHYCARDIA
     Route: 048
     Dates: start: 20100127, end: 20100312
  2. BISOPROLOL FUMARATE [Concomitant]
  3. CITALOPRAM [Concomitant]
  4. DIGOXIN [Concomitant]
  5. PERSANTIN [Concomitant]
  6. SPIRIVA [Concomitant]
  7. RAMIPRIL [Concomitant]
  8. SPIRONOLACTONE [Concomitant]
  9. LANSOPRAZOLE [Concomitant]
  10. AVODART [Concomitant]
  11. IMOZOP [Concomitant]
  12. CENTYL MED KALIUMKLORID [Concomitant]
  13. FURIX [Concomitant]

REACTIONS (3)
  - BLOOD CREATININE INCREASED [None]
  - DERMATITIS EXFOLIATIVE [None]
  - MALAISE [None]
